FAERS Safety Report 8174734-X (Version None)
Quarter: 2012Q1

REPORT INFORMATION
  Report Type: 
  Country: None (occurrence: None)
  Receive Date: 20120229
  Receipt Date: 20120221
  Transmission Date: 20120608
  Serious: Yes (Other)
  Sender: FDA-Public Use
  Company Number: FR-GLAXOSMITHKLINE-B0783015A

PATIENT
  Sex: Female

DRUGS (10)
  1. KEPPRA [Concomitant]
     Route: 065
  2. ZOPHREN IV [Suspect]
     Indication: VOMITING PROJECTILE
     Dosage: 8MG TWICE PER DAY
     Route: 042
     Dates: start: 20111227, end: 20111228
  3. ZOPLICONE [Concomitant]
     Route: 065
  4. ACETAMINOPHEN [Concomitant]
     Route: 065
  5. PRIMPERAN TAB [Concomitant]
     Indication: VOMITING PROJECTILE
     Route: 065
  6. METHYLPREDNISOLONE [Suspect]
     Indication: PRODUCT USED FOR UNKNOWN INDICATION
     Dosage: 120MG TWICE PER DAY
     Route: 042
     Dates: start: 20111227, end: 20111229
  7. TRAMADOL HCL [Concomitant]
     Route: 065
  8. PREDNISONE TAB [Concomitant]
     Route: 065
  9. POTASSIUM CHLORIDE [Concomitant]
     Route: 065
  10. NEXIUM [Concomitant]
     Route: 065

REACTIONS (1)
  - ERYTHEMA [None]
